FAERS Safety Report 7399644-7 (Version None)
Quarter: 2011Q2

REPORT INFORMATION
  Report Type: 
  Country: None (occurrence: None)
  Receive Date: 20110407
  Receipt Date: 20100804
  Transmission Date: 20111010
  Serious: No
  Sender: FDA-Public Use
  Company Number: US-KINGPHARMUSA00001-K201000991

PATIENT
  Age: 81 Year
  Sex: Male

DRUGS (7)
  1. GLUCOCORTICOIDS [Concomitant]
     Indication: MULTIPLE MYELOMA
  2. ANTINEOPLASTIC AGENTS [Concomitant]
  3. COUMADIN [Suspect]
     Dosage: 6 MG, SINGLE
     Route: 048
     Dates: start: 20100809, end: 20100809
  4. ANTIHYPERTENSIVES [Concomitant]
     Indication: HYPERTENSION
  5. COUMADIN [Suspect]
     Dosage: 4 MG, QD
     Route: 048
     Dates: start: 20100810
  6. COUMADIN [Suspect]
     Indication: STENT PLACEMENT
     Dosage: 4 MG, QD
     Route: 048
     Dates: start: 20090101, end: 20100803
  7. SKELAXIN [Suspect]
     Indication: MUSCULOSKELETAL STIFFNESS
     Dosage: 800 MG, TID
     Route: 048
     Dates: start: 20100701, end: 20100802

REACTIONS (2)
  - ANTICOAGULATION DRUG LEVEL ABOVE THERAPEUTIC [None]
  - INTERNATIONAL NORMALISED RATIO INCREASED [None]
